FAERS Safety Report 4813138-1 (Version None)
Quarter: 2005Q4

REPORT INFORMATION
  Report Type: 
  Country: None (occurrence: None)
  Receive Date: 20051028
  Receipt Date: 20051021
  Transmission Date: 20060501
  Serious: Yes (Other)
  Sender: FDA-Public Use
  Company Number: US-SANOFI-SYNTHELABO-A03200503366

PATIENT
  Sex: Male
  Weight: 106.6 kg

DRUGS (1)
  1. AMBIEN [Suspect]
     Indication: INSOMNIA
     Dosage: 10 MG 14 DAYS A MONTH
     Route: 048
     Dates: start: 20050601, end: 20051019

REACTIONS (3)
  - AMNESIA [None]
  - DIPLOPIA [None]
  - ELECTROENCEPHALOGRAM ABNORMAL [None]
